FAERS Safety Report 5655884-6 (Version None)
Quarter: 2008Q1

REPORT INFORMATION
  Report Type: 
  Country: None (occurrence: None)
  Receive Date: 20080307
  Receipt Date: 20080227
  Transmission Date: 20080703
  Serious: Yes (Other)
  Sender: FDA-Public Use
  Company Number: ZA-ABBOTT-08P-143-0434539-00

PATIENT
  Age: 38 Year
  Sex: Male

DRUGS (4)
  1. EPILIM CHRONO TABLETS [Suspect]
     Indication: EPILEPSY
     Route: 048
  2. PHENYTOIN SODIUM [Concomitant]
     Indication: EPILEPSY
     Route: 048
  3. LAMOTRIGINE [Concomitant]
     Indication: EPILEPSY
     Route: 048
     Dates: start: 20070101
  4. SOMNOL TAB [Concomitant]
     Indication: DRUG USE FOR UNKNOWN INDICATION
     Route: 048

REACTIONS (4)
  - DRUG INEFFECTIVE [None]
  - MEDICATION RESIDUE [None]
  - PETIT MAL EPILEPSY [None]
  - PHARMACEUTICAL PRODUCT COMPLAINT [None]
